FAERS Safety Report 8476626-5 (Version None)
Quarter: 2012Q2

REPORT INFORMATION
  Report Type: 
  Country: None (occurrence: None)
  Receive Date: 20120628
  Receipt Date: 20120620
  Transmission Date: 20120825
  Serious: Yes (Hospitalization)
  Sender: FDA-Public Use
  Company Number: FR-UCBSA-060186

PATIENT
  Age: 86 Year
  Sex: Female

DRUGS (7)
  1. KEPPRA [Suspect]
     Route: 048
     Dates: start: 20120216, end: 20120220
  2. AMOXICILLIN [Suspect]
     Route: 048
     Dates: start: 20120216, end: 20120220
  3. SIMVASTATIN [Concomitant]
     Dosage: 20 MG
  4. CLONAZEPAM [Suspect]
     Dosage: 1 MG/ML, SOLUTION FOR DILUTION IN PHIALS
     Dates: start: 20120215, end: 20120215
  5. FELODIPINE [Concomitant]
  6. ZOLPIDEM TARTRATE [Concomitant]
  7. LEVOTHYROXINE SODIUM [Concomitant]
     Dosage: 100 MCG

REACTIONS (1)
  - NEUTROPENIA [None]
